FAERS Safety Report 5775928-0 (Version None)
Quarter: 2008Q2

REPORT INFORMATION
  Report Type: 
  Country: None (occurrence: None)
  Receive Date: 20080617
  Receipt Date: 20080604
  Transmission Date: 20081010
  Serious: Yes (Other)
  Sender: FDA-Public Use
  Company Number: US-ELI_LILLY_AND_COMPANY-US200806000912

PATIENT
  Sex: Female

DRUGS (8)
  1. EVISTA [Suspect]
     Indication: OSTEOPOROSIS
     Dosage: 60 MG, UNK
     Dates: start: 20030101, end: 20080520
  2. LOVASTATIN [Concomitant]
     Indication: HEART RATE INCREASED
  3. THYROID THERAPY [Concomitant]
     Indication: THYROID DISORDER
  4. EYE DROPS [Concomitant]
     Indication: GLAUCOMA
  5. PRILOSEC [Concomitant]
     Indication: HIATUS HERNIA
  6. VITAMIN D [Concomitant]
  7. CALCIUM [Concomitant]
  8. ALEVE [Concomitant]
     Indication: ARTHRITIS

REACTIONS (4)
  - CHEST PAIN [None]
  - DYSPNOEA [None]
  - HEART RATE INCREASED [None]
  - SLEEP DISORDER [None]
